FAERS Safety Report 7924680-9 (Version None)
Quarter: 2011Q4

REPORT INFORMATION
  Report Type: 
  Country: None (occurrence: None)
  Receive Date: 20111118
  Receipt Date: 20110325
  Transmission Date: 20120403
  Serious: No
  Sender: FDA-Public Use
  Company Number: US-AMGEN-USASP2011016248

PATIENT
  Age: 53 Year
  Sex: Male

DRUGS (2)
  1. TREXALL [Concomitant]
     Dosage: 1 MG, QWK
     Dates: start: 20100701
  2. ENBREL [Suspect]
     Indication: RHEUMATOID ARTHRITIS
     Dosage: 50 MG, QWK
     Dates: start: 20110309

REACTIONS (1)
  - ALOPECIA [None]
